FAERS Safety Report 16557449 (Version 2)
Quarter: 2019Q3

REPORT INFORMATION
  Report Type: Spontaneous
  Country: BE (occurrence: BE)
  Receive Date: 20190711
  Receipt Date: 20190716
  Transmission Date: 20191004
  Serious: Yes (Other)
  Sender: FDA-Public Use
  Company Number: BE-EMD SERONO-9102312

PATIENT
  Age: 63 Year

DRUGS (8)
  1. REBIF [Suspect]
     Active Substance: INTERFERON BETA-1A
     Dosage: SOLUBLE SUBCUTANEOUS [AMPULE] 4X1.5ML 44 UG / 0.5ML
     Route: 058
  2. SYMMETREL [Concomitant]
     Active Substance: AMANTADINE HYDROCHLORIDE
     Indication: PRODUCT USED FOR UNKNOWN INDICATION
     Dosage: 60 X 100MG (INAMI)
  3. REBIF [Suspect]
     Active Substance: INTERFERON BETA-1A
     Indication: MULTIPLE SCLEROSIS
     Dosage: AMPULE
     Route: 058
     Dates: start: 20101104
  4. PANTOMED                           /00178901/ [Concomitant]
     Active Substance: DEXPANTHENOL
     Indication: PRODUCT USED FOR UNKNOWN INDICATION
     Dosage: 100X 20MG [BLISTER]: 1 SOBER
  5. PARACETAMOL [Concomitant]
     Active Substance: ACETAMINOPHEN
     Indication: PRODUCT USED FOR UNKNOWN INDICATION
  6. MOBIC [Concomitant]
     Active Substance: MELOXICAM
     Indication: PRODUCT USED FOR UNKNOWN INDICATION
     Dosage: 30X 15MG
  7. OLMESARTAN [Concomitant]
     Active Substance: OLMESARTAN
     Indication: PRODUCT USED FOR UNKNOWN INDICATION
     Dosage: EG FILM ENVELOPED TABLET: 90X 20MG
  8. L-THYROXINE                        /00068001/ [Concomitant]
     Active Substance: LEVOTHYROXINE
     Indication: PRODUCT USED FOR UNKNOWN INDICATION
     Dosage: DISPERSIBLE TABLET (DIVISIBLE) 112 X 75 UG: 1 SOBER

REACTIONS (7)
  - Inappropriate schedule of product administration [Unknown]
  - Osteosclerosis [Unknown]
  - Exostosis [Unknown]
  - Colon adenoma [Unknown]
  - Hypothyroidism [Unknown]
  - Hypertension [Unknown]
  - Gastrointestinal stromal tumour [Unknown]

NARRATIVE: CASE EVENT DATE: 2010
